FAERS Safety Report 7609570-3 (Version None)
Quarter: 2011Q3

REPORT INFORMATION
  Report Type: 
  Country: None (occurrence: None)
  Receive Date: 20110714
  Receipt Date: 20110704
  Transmission Date: 20111222
  Serious: Yes (Other)
  Sender: FDA-Public Use
  Company Number: FR-JNJFOC-20110403058

PATIENT
  Age: 49 Year
  Sex: Female
  Weight: 57 kg

DRUGS (5)
  1. PRAZEPAM [Suspect]
     Indication: DEPRESSION
     Route: 048
     Dates: start: 20090101
  2. REMICADE [Suspect]
     Indication: CROHN'S DISEASE
     Dosage: 5TH INFUSION
     Route: 042
     Dates: start: 20080709
  3. REMICADE [Suspect]
     Route: 042
     Dates: start: 20110114
  4. REMICADE [Suspect]
     Dosage: INFUSION 1-4
     Route: 042
     Dates: start: 20080215, end: 20080709
  5. PAROXETINE HCL [Suspect]
     Indication: DEPRESSION
     Route: 048
     Dates: start: 20090101

REACTIONS (4)
  - CHILLS [None]
  - BREAST INFLAMMATION [None]
  - PYREXIA [None]
  - VERTIGO [None]
